FAERS Safety Report 22048674 (Version 1)
Quarter: 2023Q1

REPORT INFORMATION
  Report Type: Spontaneous
  Country: GB (occurrence: GB)
  Receive Date: 20230301
  Receipt Date: 20230301
  Transmission Date: 20230418
  Serious: Yes (Hospitalization)
  Sender: FDA-Public Use
  Company Number: GB-MYLANLABS-2023M1021059

PATIENT
  Sex: Male

DRUGS (5)
  1. TRANEXAMIC ACID [Suspect]
     Active Substance: TRANEXAMIC ACID
     Indication: Haemorrhage
     Dosage: UNK, UMBILICAL STUMP WAS COVERED WITH GAUZE SOAKED WITH TRANEXAMIC-ACID
     Route: 065
  2. VITAMIN K [Suspect]
     Active Substance: PHYTONADIONE
     Indication: Haemorrhage
     Dosage: 1 MILLIGRAM
     Route: 030
  3. EPINEPHRINE [Concomitant]
     Active Substance: EPINEPHRINE
     Indication: Haemorrhage
     Dosage: UNK, TREATED WITH EPINEPHRINE-SOAKED GAUZE APLIED
     Route: 061
  4. Kaltostat [Concomitant]
     Indication: Haemorrhage
     Dosage: UNK, CALCIUM ALGINATE/SODIUM ALGINATE DRESSING ALSO APPLIED
     Route: 061
  5. SILVER NITRATE [Concomitant]
     Active Substance: SILVER NITRATE
     Indication: Haemorrhage
     Dosage: UNK
     Route: 065

REACTIONS (2)
  - Drug ineffective [Unknown]
  - Off label use [Unknown]
